FAERS Safety Report 15571793 (Version 1)
Quarter: 2018Q4

REPORT INFORMATION
  Report Type: Spontaneous
  Country: US (occurrence: US)
  Receive Date: 20181031
  Receipt Date: 20181031
  Transmission Date: 20190205
  Serious: Yes (Other)
  Sender: FDA-Public Use
  Company Number: US-SA-2018SA297864

PATIENT
  Age: 63 Year
  Sex: Male

DRUGS (1)
  1. JEVTANA [Suspect]
     Active Substance: CABAZITAXEL
     Indication: PROPHYLAXIS
     Dosage: 20 MG/M2, Q3W
     Route: 065

REACTIONS (1)
  - Seizure [Not Recovered/Not Resolved]
